FAERS Safety Report 14240451 (Version 1)
Quarter: 2017Q4

REPORT INFORMATION
  Report Type: Spontaneous
  Country: US (occurrence: US)
  Receive Date: 20171130
  Receipt Date: 20171130
  Transmission Date: 20180321
  Serious: Yes (Death, Other)
  Sender: FDA-Public Use
  Company Number: US-BAUSCH-BL-2017-032416

PATIENT
  Age: 50 Year
  Sex: Female

DRUGS (5)
  1. AUROTHIOGLUCOSE [Concomitant]
     Active Substance: AUROTHIOGLUCOSE
     Indication: POLYARTHRITIS
     Dosage: SUSPENSION TOTAL DOSE OF 1,500 MG OF GOLD OVER A PERIOD OF 9 MONTHS
  2. CHOLINE SALICYLATE [Concomitant]
     Active Substance: CHOLINE SALICYLATE
     Indication: POLYARTHRITIS
  3. SULINDAC. [Concomitant]
     Active Substance: SULINDAC
     Indication: POLYARTHRITIS
  4. D-PENICILLAMINE [Suspect]
     Active Substance: PENICILLAMINE
     Indication: POLYARTHRITIS
     Dosage: IN GRADUALLY INCREASING DOSES TO A LEVEL OF 1 GM DAILY
     Route: 048
     Dates: start: 197906
  5. NAPROXEN. [Concomitant]
     Active Substance: NAPROXEN
     Indication: POLYARTHRITIS

REACTIONS (1)
  - Dermatitis bullous [Unknown]
